FAERS Safety Report 19221804 (Version 1)
Quarter: 2021Q2

REPORT INFORMATION
  Report Type: Spontaneous
  Country: US (occurrence: US)
  Receive Date: 20210505
  Receipt Date: 20210505
  Transmission Date: 20210717
  Serious: Yes (Death)
  Sender: FDA-Public Use
  Company Number: None

PATIENT
  Age: 22 Year
  Sex: Male
  Weight: 88 kg

DRUGS (1)
  1. AIMOVIG [Suspect]
     Active Substance: ERENUMAB-AOOE
     Indication: MIGRAINE
     Dosage: ?          OTHER FREQUENCY:MONTHLY;?
     Route: 058
     Dates: start: 20180617, end: 20180617

REACTIONS (18)
  - Adverse drug reaction [None]
  - Nausea [None]
  - Cardio-respiratory arrest [None]
  - Cerebrovascular accident [None]
  - Magnetic resonance imaging head abnormal [None]
  - Apallic syndrome [None]
  - Pyrexia [None]
  - Respiratory failure [None]
  - Disease complication [None]
  - Ischaemic hepatitis [None]
  - Encephalopathy [None]
  - International normalised ratio increased [None]
  - Sleep deficit [None]
  - Procedural failure [None]
  - Vomiting [None]
  - Generalised tonic-clonic seizure [None]
  - Status epilepticus [None]
  - Brain oedema [None]

NARRATIVE: CASE EVENT DATE: 20201117
